FAERS Safety Report 23960432 (Version 1)
Quarter: 2024Q2

REPORT INFORMATION
  Report Type: Spontaneous
  Country: US (occurrence: US)
  Receive Date: 20240611
  Receipt Date: 20240611
  Transmission Date: 20240715
  Serious: Yes (Hospitalization)
  Sender: FDA-Public Use
  Company Number: US-MYLANLABS-2024M1052386

PATIENT
  Age: 72 Year
  Sex: Female

DRUGS (3)
  1. HYDRALAZINE [Suspect]
     Active Substance: HYDRALAZINE HYDROCHLORIDE
     Indication: Essential hypertension
     Dosage: 50 MILLIGRAM, TID, 3 TIMES DAILY, ABOUT A YEAR AND A HALF
     Route: 065
  2. LOSARTAN [Concomitant]
     Active Substance: LOSARTAN
     Indication: Essential hypertension
     Dosage: 100 MILLIGRAM, QD
     Route: 065
  3. CARVEDILOL [Concomitant]
     Active Substance: CARVEDILOL
     Indication: Essential hypertension
     Dosage: 6.25 MILLIGRAM, BID
     Route: 065

REACTIONS (2)
  - Anti-neutrophil cytoplasmic antibody positive vasculitis [Unknown]
  - Acute kidney injury [Unknown]
